FAERS Safety Report 5916324-2 (Version None)
Quarter: 2008Q4

REPORT INFORMATION
  Report Type: 
  Country: None (occurrence: None)
  Receive Date: 20081013
  Receipt Date: 20081008
  Transmission Date: 20090506
  Serious: Yes (Death, Other)
  Sender: FDA-Public Use
  Company Number: PHHY2008BR15008

PATIENT
  Sex: Male
  Weight: 26.4 kg

DRUGS (10)
  1. SANDIMMUNE [Suspect]
     Indication: PROPHYLAXIS AGAINST GRAFT VERSUS HOST DISEASE
     Dosage: 80 MG, UNK
     Dates: start: 20080418, end: 20080419
  2. SANDIMMUNE [Suspect]
     Dosage: 50 MG, Q12H
     Dates: end: 20080419
  3. MEROPENEM [Concomitant]
  4. ACYCLOVIR [Concomitant]
  5. ONDANSETRON [Concomitant]
  6. METYLPREDNISOLON SOLUBILE [Concomitant]
  7. CASPOFUNGIN [Concomitant]
  8. GRANULOKINE [Concomitant]
  9. OMEPRAZOLE [Concomitant]
  10. AMLODIPINE [Concomitant]

REACTIONS (8)
  - FATIGUE [None]
  - HYPOTENSION [None]
  - MECHANICAL VENTILATION [None]
  - RESPIRATORY FAILURE [None]
  - SOMNOLENCE [None]
  - VISION BLURRED [None]
  - VISUAL ACUITY REDUCED [None]
  - VISUAL IMPAIRMENT [None]
